FAERS Safety Report 4764561-5 (Version None)
Quarter: 2005Q3

REPORT INFORMATION
  Report Type: 
  Country: None (occurrence: None)
  Receive Date: 20050906
  Receipt Date: 20050822
  Transmission Date: 20060218
  Serious: Yes (Hospitalization)
  Sender: FDA-Public Use
  Company Number: 0507-332

PATIENT
  Age: 74 Year
  Sex: Male
  Weight: 0.69 kg

DRUGS (6)
  1. INITIAL DOSE OF CUROSURF 2.5 ML [Suspect]
     Indication: RESPIRATORY DISTRESS
     Dosage: 2.5 ML, ENDOTRACHEALLY
     Route: 007
     Dates: start: 20050715
  2. SECOND DOSE OF CUROSURF 1.25ML [Suspect]
     Dosage: 1.25 ML, AGAIN 13 HRS LATER
     Dates: start: 20050715
  3. AMPICILLIN [Concomitant]
  4. GENTAMICIN [Concomitant]
  5. DOPAMINE [Concomitant]
  6. HYDROCORTISONE [Suspect]

REACTIONS (11)
  - ADRENAL INSUFFICIENCY NEONATAL [None]
  - ANAEMIA NEONATAL [None]
  - BACTERAEMIA [None]
  - CHEST X-RAY ABNORMAL [None]
  - HAEMATOCRIT DECREASED [None]
  - HYPERTENSION NEONATAL [None]
  - MALAISE [None]
  - NEONATAL DISORDER [None]
  - PNEUMOTHORAX [None]
  - PULMONARY EMBOLISM [None]
  - PULMONARY HAEMORRHAGE [None]
